FAERS Safety Report 5220959-2 (Version None)
Quarter: 2007Q1

REPORT INFORMATION
  Report Type: 
  Country: None (occurrence: None)
  Receive Date: 20070123
  Receipt Date: 20070109
  Transmission Date: 20070707
  Serious: Yes (Life-Threatening, Hospitalization)
  Sender: FDA-Public Use
  Company Number: 2007RR-05212

PATIENT
  Age: 72 Year
  Sex: Male

DRUGS (10)
  1. FENOFIBRATE [Suspect]
     Indication: LIPIDS INCREASED
     Dosage: 160 MG, ORAL
     Route: 048
     Dates: start: 20061124, end: 20061220
  2. WARFARIN SODIUM [Suspect]
     Indication: AORTIC VALVE REPLACEMENT
     Dosage: ORAL
     Route: 048
     Dates: start: 19870101, end: 20061220
  3. BUMETANIDE [Concomitant]
  4. CARVEDILOL [Concomitant]
  5. DIGOXIN [Concomitant]
  6. NOVOMIX [Concomitant]
  7. PRAVASTATIN [Concomitant]
  8. RAMIPRIL [Concomitant]
  9. SPIRONOLACTONE [Concomitant]
  10. AVRIAF [Concomitant]

REACTIONS (2)
  - DRUG INTERACTION [None]
  - INTERNATIONAL NORMALISED RATIO INCREASED [None]
